FAERS Safety Report 18687436 (Version 7)
Quarter: 2021Q2

REPORT INFORMATION
  Report Type: Report from Study
  Country: US (occurrence: US)
  Receive Date: 20201231
  Receipt Date: 20210430
  Transmission Date: 20210717
  Serious: Yes (Hospitalization, Other)
  Sender: FDA-Public Use
  Company Number: US-ASTELLAS-2019US029705

PATIENT
  Age: 78 Year
  Sex: Male

DRUGS (1)
  1. ENZALUTAMIDE [Suspect]
     Active Substance: ENZALUTAMIDE
     Indication: PROSTATE CANCER
     Route: 048
     Dates: start: 201903

REACTIONS (15)
  - Pain in extremity [Not Recovered/Not Resolved]
  - Skin cancer [Unknown]
  - Skin cancer [Unknown]
  - Fall [Not Recovered/Not Resolved]
  - Malignant neoplasm progression [Unknown]
  - Fall [Recovered/Resolved]
  - Limb discomfort [Unknown]
  - Rotator cuff syndrome [Unknown]
  - Weight decreased [Recovering/Resolving]
  - Wrist fracture [Recovered/Resolved]
  - Eating disorder [Recovering/Resolving]
  - Malaise [Unknown]
  - Back pain [Not Recovered/Not Resolved]
  - Muscular weakness [Not Recovered/Not Resolved]
  - Fractured coccyx [Not Recovered/Not Resolved]

NARRATIVE: CASE EVENT DATE: 201907
